FAERS Safety Report 8174119-6 (Version None)
Quarter: 2012Q1

REPORT INFORMATION
  Report Type: 
  Country: None (occurrence: None)
  Receive Date: 20120224
  Receipt Date: 20120213
  Transmission Date: 20120608
  Serious: Yes (Hospitalization)
  Sender: FDA-Public Use
  Company Number: 2012MA002009

PATIENT
  Age: 26 Year
  Sex: Male

DRUGS (8)
  1. DIAZEPAM [Suspect]
     Indication: HEADACHE
     Dates: start: 19870107, end: 20090803
  2. DIAZEPAM [Suspect]
     Indication: ANXIETY
     Dates: start: 19870107, end: 20090803
  3. DIAZEPAM [Suspect]
     Indication: FEELING ABNORMAL
     Dates: start: 19870107, end: 20090803
  4. OXAZEPAM [Suspect]
     Indication: HEADACHE
     Dates: start: 19870107, end: 20090803
  5. OXAZEPAM [Suspect]
     Indication: FEELING ABNORMAL
     Dates: start: 19870107, end: 20090803
  6. OXAZEPAM [Suspect]
     Indication: ANXIETY
     Dates: start: 19870107, end: 20090803
  7. OXAZEPAM [Suspect]
     Indication: HEADACHE
     Dates: start: 19870107, end: 20090803
  8. OXAZEPAM [Suspect]
     Indication: ANXIETY
     Dates: start: 19870107, end: 20090803

REACTIONS (4)
  - ABDOMINAL PAIN [None]
  - DISTURBANCE IN ATTENTION [None]
  - NAUSEA [None]
  - HEADACHE [None]
